FAERS Safety Report 8407811-6 (Version None)
Quarter: 2012Q2

REPORT INFORMATION
  Report Type: 
  Country: None (occurrence: None)
  Receive Date: 20120604
  Receipt Date: 20120530
  Transmission Date: 20120825
  Serious: Yes (Life-Threatening, Hospitalization)
  Sender: FDA-Public Use
  Company Number: JP-CELGENEUS-087-21880-11080992

PATIENT
  Sex: Male

DRUGS (16)
  1. DEXAMETHASONE ACETATE [Suspect]
     Indication: MULTIPLE MYELOMA
     Dosage: .5714 MILLIGRAM
     Route: 048
     Dates: start: 20110720, end: 20110727
  2. ITRACONAZOLE [Concomitant]
     Indication: INFECTION PROPHYLAXIS
     Dosage: 100 MILLIGRAM
     Route: 048
     Dates: start: 20090123
  3. GABAPENTIN [Concomitant]
     Dosage: 600 MILLIGRAM
     Route: 048
     Dates: start: 20100608
  4. FOLIAMIN [Concomitant]
     Dosage: 15 MILLIGRAM
     Route: 048
     Dates: start: 20110811
  5. LYRICA [Concomitant]
     Dosage: 100 MILLIGRAM
     Route: 048
     Dates: start: 20101208
  6. FIRSTCIN [Concomitant]
     Indication: PYREXIA
     Route: 065
     Dates: start: 20110801
  7. ALINAMIN-F [Concomitant]
     Dosage: 75 MILLIGRAM
     Route: 048
     Dates: start: 20100804
  8. ACYCLOVIR [Concomitant]
     Indication: INFECTION PROPHYLAXIS
     Dosage: 200 MILLIGRAM
     Route: 048
     Dates: start: 20100523
  9. LANSOPRAZOLE [Concomitant]
     Indication: PROPHYLAXIS AGAINST GASTROINTESTINAL ULCER
     Dosage: 15 MILLIGRAM
     Route: 048
     Dates: start: 20090115
  10. CLONAZEPAM [Concomitant]
     Dosage: .5 MILLIGRAM
     Route: 048
     Dates: start: 20100719
  11. ASPIRIN [Concomitant]
     Dosage: 100 MILLIGRAM
     Route: 048
     Dates: start: 20110720, end: 20110805
  12. DECADRON [Concomitant]
     Route: 065
  13. CEFAZOLIN SODIUM [Concomitant]
     Dosage: 18 MILLIGRAM
     Route: 048
     Dates: start: 20100806
  14. REVLIMID [Suspect]
     Indication: MULTIPLE MYELOMA
     Dosage: 5 MILLIGRAM
     Route: 048
     Dates: start: 20110720, end: 20110802
  15. COTRIM [Concomitant]
     Indication: INFECTION PROPHYLAXIS
     Dosage: .4286 GRAM
     Route: 048
     Dates: start: 20090123
  16. VITAMIN B12 [Concomitant]
     Dosage: 1500 MICROGRAM
     Route: 048
     Dates: start: 20110616

REACTIONS (1)
  - INTERSTITIAL LUNG DISEASE [None]
